FAERS Safety Report 5234493-7 (Version None)
Quarter: 2007Q1

REPORT INFORMATION
  Report Type: 
  Country: None (occurrence: None)
  Receive Date: 20070209
  Receipt Date: 20061228
  Transmission Date: 20070707
  Serious: Yes (Other)
  Sender: FDA-Public Use
  Company Number: 2006SE06982

PATIENT
  Age: 67 Year
  Sex: Male
  Weight: 82 kg

DRUGS (1)
  1. CRESTOR [Suspect]
     Indication: ARTERIOSCLEROSIS
     Route: 048
     Dates: start: 20061102, end: 20061111

REACTIONS (2)
  - ERYTHEMA [None]
  - RHABDOMYOLYSIS [None]
